FAERS Safety Report 6754974-4 (Version None)
Quarter: 2010Q2

REPORT INFORMATION
  Report Type: 
  Country: None (occurrence: None)
  Receive Date: 20100602
  Receipt Date: 20100526
  Transmission Date: 20101027
  Serious: Yes (Life-Threatening)
  Sender: FDA-Public Use
  Company Number: SP02935

PATIENT
  Age: 80 Year
  Sex: Female

DRUGS (1)
  1. MOVIPREP [Suspect]
     Indication: COLONOSCOPY
     Dosage: SEE TEXT
     Dates: start: 20100521, end: 20100521

REACTIONS (5)
  - HYPOKALAEMIA [None]
  - HYPONATRAEMIA [None]
  - INCORRECT ROUTE OF DRUG ADMINISTRATION [None]
  - PULMONARY OEDEMA [None]
  - TACHYCARDIA [None]
